FAERS Safety Report 16297947 (Version 1)
Quarter: 2019Q2

REPORT INFORMATION
  Report Type: Spontaneous
  Country: NO (occurrence: NO)
  Receive Date: 20190510
  Receipt Date: 20190510
  Transmission Date: 20190711
  Serious: Yes (Hospitalization)
  Sender: FDA-Public Use
  Company Number: NO-MYLANLABS-08P-122-0438537-00

PATIENT
  Age: 64 Year
  Sex: Male

DRUGS (8)
  1. IBUPROFEN. [Suspect]
     Active Substance: IBUPROFEN
     Indication: PAIN
     Dosage: 1.6-2 GRAMS- 4-6 GR FOR 3 DAYS
     Route: 048
     Dates: start: 20080125, end: 20080128
  2. IBUPROFEN. [Interacting]
     Active Substance: IBUPROFEN
     Dosage: 400 MILLIGRAM, QD, USED X4-5 AS NEEDED OVER A LONGER PERIOD, CURR 4-6 G OVER 3 DAYS
     Route: 048
     Dates: end: 20080125
  3. GLUCOPHAGE [Concomitant]
     Active Substance: METFORMIN HYDROCHLORIDE
     Indication: DIABETES MELLITUS
     Dosage: 1GRAMBID
     Route: 048
  4. ZESTORETIC [Interacting]
     Active Substance: HYDROCHLOROTHIAZIDE\LISINOPRIL
     Indication: CORONARY ARTERY DISEASE
     Dosage: 1 DOSAGE FORM, QD
  5. AMARYL [Concomitant]
     Active Substance: GLIMEPIRIDE
     Indication: DIABETES MELLITUS
     Dosage: 4MILLIGRAMQD
     Route: 048
  6. ALBYL-E [Interacting]
     Active Substance: ASPIRIN\MAGNESIUM OXIDE
     Indication: CORONARY ARTERY DISEASE
     Dosage: 160 MILLIGRAM, QD
     Route: 048
  7. SIMVASTATINE [Concomitant]
     Active Substance: SIMVASTATIN
     Indication: HYPERCHOLESTEROLAEMIA
     Dosage: 40MILLIGRAMQD
     Route: 048
  8. METOPROLOL TARTRATE. [Concomitant]
     Active Substance: METOPROLOL TARTRATE
     Indication: CORONARY ARTERY DISEASE
     Dosage: 100MILLIGRAMQD
     Route: 048

REACTIONS (3)
  - Drug interaction [Unknown]
  - Overdose [Unknown]
  - Acute kidney injury [Recovering/Resolving]

NARRATIVE: CASE EVENT DATE: 20080128
